FAERS Safety Report 5695193-2 (Version None)
Quarter: 2008Q2

REPORT INFORMATION
  Report Type: 
  Country: None (occurrence: None)
  Receive Date: 20080404
  Receipt Date: 20080326
  Transmission Date: 20081010
  Serious: Yes (Other)
  Sender: FDA-Public Use
  Company Number: US-PFIZER INC-2008027408

PATIENT
  Age: 59 Year
  Sex: Male

DRUGS (7)
  1. LIPITOR [Suspect]
     Indication: DYSLIPIDAEMIA
     Route: 048
     Dates: start: 20060101, end: 20070801
  2. ACETYLSALICYLIC ACID SRT [Concomitant]
     Dosage: DAILY DOSE:81MG
  3. BENICAR HCT [Concomitant]
     Dosage: TEXT:40/12.5-FREQ:DAILY
  4. SPIRONOLACTONE [Concomitant]
     Dosage: DAILY DOSE:25MG
  5. ALLEGRA [Concomitant]
     Dosage: DAILY DOSE:180MG
  6. ATENOLOL [Concomitant]
     Dosage: DAILY DOSE:25MG
  7. NITROGLYCERIN [Concomitant]
     Dosage: FREQ:AS NEEDED

REACTIONS (1)
  - RENAL FAILURE ACUTE [None]
